FAERS Safety Report 6758922-2 (Version None)
Quarter: 2010Q2

REPORT INFORMATION
  Report Type: 
  Country: None (occurrence: None)
  Receive Date: 20100607
  Receipt Date: 20100601
  Transmission Date: 20101027
  Serious: Yes (Death, Other)
  Sender: FDA-Public Use
  Company Number: PHHY2010US35871

PATIENT
  Age: 2 Year
  Sex: Female

DRUGS (10)
  1. CYCLOSPORINE [Suspect]
     Indication: STEM CELL TRANSPLANT
  2. CYCLOSPORINE [Suspect]
     Indication: PROPHYLAXIS AGAINST GRAFT VERSUS HOST DISEASE
  3. RITUXIMAB [Suspect]
     Indication: STEM CELL TRANSPLANT
  4. RITUXIMAB [Suspect]
     Indication: PROPHYLAXIS AGAINST GRAFT VERSUS HOST DISEASE
  5. METHYLPREDNISOLONE [Suspect]
     Indication: PROPHYLAXIS AGAINST GRAFT VERSUS HOST DISEASE
  6. METHYLPREDNISOLONE [Suspect]
     Indication: STEM CELL TRANSPLANT
  7. CYCLOPHOSPHAMIDE [Suspect]
     Indication: STEM CELL TRANSPLANT
     Dosage: 440 MG/M2 PER DAY
  8. CYCLOPHOSPHAMIDE [Suspect]
     Dosage: 60 MG/ KG PER DAY FOR TWO DAYS
  9. THIOTEPA [Suspect]
     Indication: STEM CELL TRANSPLANT
     Dosage: 5 MG/KG, BID
  10. RADIATION THERAPY [Concomitant]
     Indication: STEM CELL TRANSPLANT
     Dosage: 1200 CGY

REACTIONS (3)
  - ACUTE GRAFT VERSUS HOST DISEASE IN SKIN [None]
  - ACUTE LYMPHOCYTIC LEUKAEMIA RECURRENT [None]
  - MUCOSAL INFLAMMATION [None]
